FAERS Safety Report 9945316 (Version 1)
Quarter: 2014Q1

REPORT INFORMATION
  Report Type: Report from Study
  Country: US (occurrence: US)
  Receive Date: 20140303
  Receipt Date: 20140303
  Transmission Date: 20141002
  Serious: No
  Sender: FDA-Public Use
  Company Number: US-ABBVIE-13P-163-1051965-00

PATIENT
  Sex: Male
  Weight: 86.26 kg

DRUGS (2)
  1. HUMIRA [Suspect]
     Indication: ARTHROPATHY
     Route: 058
  2. HUMIRA [Suspect]
     Indication: SERONEGATIVE ARTHRITIS

REACTIONS (1)
  - Off label use [Unknown]
